FAERS Safety Report 11223952 (Version 1)
Quarter: 2015Q2

REPORT INFORMATION
  Report Type: Report from Study
  Country: US (occurrence: US)
  Receive Date: 20150629
  Receipt Date: 20150629
  Transmission Date: 20150821
  Serious: Yes (Hospitalization)
  Sender: FDA-Public Use
  Company Number: US-GILEAD-2015-0160541

PATIENT
  Age: 82 Year
  Sex: Female

DRUGS (2)
  1. AMBRISENTAN [Suspect]
     Active Substance: AMBRISENTAN
     Indication: PRODUCT USED FOR UNKNOWN INDICATION
     Dosage: 5 MG, QD
     Route: 065
     Dates: start: 20140804
  2. COUMADIN [Concomitant]
     Active Substance: WARFARIN SODIUM

REACTIONS (3)
  - Hypersensitivity [Unknown]
  - Chronic obstructive pulmonary disease [Unknown]
  - Dyspnoea [Unknown]
